FAERS Safety Report 5291447-2 (Version None)
Quarter: 2007Q2

REPORT INFORMATION
  Report Type: 
  Country: None (occurrence: None)
  Receive Date: 20070402
  Receipt Date: 20070319
  Transmission Date: 20071010
  Serious: Yes (Other)
  Sender: FDA-Public Use
  Company Number: TCI2007A01355

PATIENT
  Age: 70 Year
  Sex: Male

DRUGS (14)
  1. ACTOS [Suspect]
     Indication: DIABETES MELLITUS NON-INSULIN-DEPENDENT
     Dosage: SEE IMAGE
     Route: 048
     Dates: start: 20050325, end: 20050610
  2. ACTOS [Suspect]
     Indication: DIABETES MELLITUS NON-INSULIN-DEPENDENT
     Dosage: SEE IMAGE
     Route: 048
     Dates: start: 20060120, end: 20070314
  3. ACTOS [Suspect]
     Indication: DIABETES MELLITUS NON-INSULIN-DEPENDENT
     Dosage: SEE IMAGE
     Route: 048
     Dates: start: 20070315
  4. AMARYL [Suspect]
     Dosage: SEE IMAGE
     Route: 048
     Dates: start: 20050610, end: 20050804
  5. AMARYL [Suspect]
     Dosage: SEE IMAGE
     Route: 048
     Dates: start: 20050805
  6. BASEN TABLETS 0.2 (VOGLIBOSE) [Concomitant]
  7. CORINAE L (NIFEDIPINE) [Concomitant]
  8. PRORNER (BERAPROST SODIUM) [Concomitant]
  9. HARNAL D (TAMSULOSIN HYDROCHLORIDE) [Concomitant]
  10. MICARDIS [Concomitant]
  11. ZAMEC (RANITIDINE HYDROCHLORIDE) [Concomitant]
  12. ALLOPURINOL [Concomitant]
  13. PAXIL [Concomitant]
  14. ROHYPNOL (FLUNITRAZEPAM) [Concomitant]

REACTIONS (2)
  - PLEURAL EFFUSION [None]
  - PLEURAL FIBROSIS [None]
